FAERS Safety Report 21532463 (Version 1)
Quarter: 2022Q4

REPORT INFORMATION
  Report Type: Spontaneous
  Country: GB (occurrence: GB)
  Receive Date: 20221101
  Receipt Date: 20221101
  Transmission Date: 20230112
  Serious: Yes (Other)
  Sender: FDA-Public Use
  Company Number: GB-ALKEM LABORATORIES LIMITED-GB-ALKEM-2022-11737

PATIENT
  Sex: Female

DRUGS (8)
  1. FLUCONAZOLE [Suspect]
     Active Substance: FLUCONAZOLE
     Indication: Vulvovaginal candidiasis
     Dosage: UNK
     Route: 065
  2. ITRACONAZOLE [Suspect]
     Active Substance: ITRACONAZOLE
     Indication: Vulvovaginal candidiasis
     Dosage: UNK
     Route: 065
  3. CLOTRIMAZOLE [Concomitant]
     Active Substance: CLOTRIMAZOLE
     Indication: Vulvovaginal candidiasis
     Dosage: UNK
     Route: 061
  4. NYSTATIN [Concomitant]
     Active Substance: NYSTATIN
     Indication: Vulvovaginal candidiasis
     Dosage: 100000 INTERNATIONAL UNIT, HS 3*14 NIGHTS
     Route: 065
  5. NYSTATIN [Concomitant]
     Active Substance: NYSTATIN
     Dosage: 100000 INTERNATIONAL UNIT, HS 1*14 NIGHTS
     Route: 065
  6. NYSTATIN [Concomitant]
     Active Substance: NYSTATIN
     Dosage: 100000 INTERNATIONAL UNIT, HS
     Route: 061
  7. VORICONAZOLE [Concomitant]
     Active Substance: VORICONAZOLE
     Indication: Vulvovaginal candidiasis
     Dosage: 400 MILLIGRAM, BID DAY-1
     Route: 048
  8. VORICONAZOLE [Concomitant]
     Active Substance: VORICONAZOLE
     Dosage: 200 MILLIGRAM, BID 13 DAYS
     Route: 048

REACTIONS (1)
  - Drug resistance [Unknown]
